FAERS Safety Report 5246395-0 (Version None)
Quarter: 2007Q1

REPORT INFORMATION
  Report Type: 
  Country: None (occurrence: None)
  Receive Date: 20070226
  Receipt Date: 20070219
  Transmission Date: 20070707
  Serious: Yes (Other)
  Sender: FDA-Public Use
  Company Number: US-BAYER-200710483BCC

PATIENT

DRUGS (3)
  1. RITE AID ASPIRIN [Suspect]
     Indication: DRUG USE FOR UNKNOWN INDICATION
     Route: 048
  2. PLAVIX [Concomitant]
  3. COUMADIN [Concomitant]

REACTIONS (1)
  - CARDIAC FLUTTER [None]
